FAERS Safety Report 11189019 (Version 2)
Quarter: 2015Q3

REPORT INFORMATION
  Report Type: Spontaneous
  Country: FR (occurrence: FR)
  Receive Date: 20150615
  Receipt Date: 20150714
  Transmission Date: 20151125
  Serious: Yes (Hospitalization, Other)
  Sender: FDA-Public Use
  Company Number: FR-MALLINCKRODT-T201502947

PATIENT
  Age: 59 Year
  Sex: Female

DRUGS (8)
  1. NIDREL [Concomitant]
     Active Substance: NITRENDIPINE
     Dosage: 20 MG, QD
  2. OESTRODOSE [Concomitant]
     Active Substance: ESTRADIOL
  3. OPTIJECT 300 [Suspect]
     Active Substance: IOVERSOL
     Indication: ABDOMINAL DISCOMFORT
  4. CALTRATE VITAMINE D3 [Concomitant]
     Active Substance: CALCIUM CARBONATE\VITAMIN D
     Dosage: 600 MG, BID
  5. UTROGESTAN [Concomitant]
     Active Substance: PROGESTERONE
  6. OPTIJECT 300 [Suspect]
     Active Substance: IOVERSOL
     Indication: COMPUTERISED TOMOGRAM
     Dosage: 90 ML, SINGLE
     Route: 042
     Dates: start: 20150604, end: 20150604
  7. TRIFLUSAL [Concomitant]
     Active Substance: TRIFLUSAL
  8. GLUCOPHAGE [Concomitant]
     Active Substance: METFORMIN HYDROCHLORIDE
     Dosage: 850 MG, BID

REACTIONS (1)
  - Anaphylactic shock [Recovered/Resolved]

NARRATIVE: CASE EVENT DATE: 20150604
